FAERS Safety Report 15960237 (Version 3)
Quarter: 2019Q2

REPORT INFORMATION
  Report Type: Spontaneous
  Country: US (occurrence: US)
  Receive Date: 20190214
  Receipt Date: 20190509
  Transmission Date: 20190711
  Serious: Yes (Death, Other)
  Sender: FDA-Public Use
  Company Number: US-009507513-1902USA004106

PATIENT
  Age: 67 Year
  Sex: Male
  Weight: 82.09 kg

DRUGS (1)
  1. JANUMET [Suspect]
     Active Substance: METFORMIN HYDROCHLORIDE\SITAGLIPTIN PHOSPHATE
     Indication: TYPE 2 DIABETES MELLITUS
     Dosage: ONE 50/1000 MG TABLET TWICE DAILY
     Route: 048
     Dates: start: 20160118, end: 201812

REACTIONS (5)
  - Diabetes mellitus inadequate control [Unknown]
  - Pancreatic carcinoma metastatic [Fatal]
  - Nausea [Unknown]
  - Constipation [Unknown]
  - Dyspepsia [Unknown]

NARRATIVE: CASE EVENT DATE: 201802
